FAERS Safety Report 25145951 (Version 2)
Quarter: 2025Q2

REPORT INFORMATION
  Report Type: Spontaneous
  Country: US (occurrence: US)
  Receive Date: 20250401
  Receipt Date: 20250403
  Transmission Date: 20250717
  Serious: No
  Sender: LIFE MOLECULAR IMAGING LTD
  Company Number: US-Life Molecular Imaging Ltd-2174048

PATIENT
  Sex: Female

DRUGS (1)
  1. NEURACEQ [Suspect]
     Active Substance: FLORBETABEN F-18
     Indication: Imaging procedure
     Dates: start: 20240423, end: 20240423

REACTIONS (2)
  - Injection site pain [Recovered/Resolved]
  - Wrong technique in product usage process [Recovered/Resolved]

NARRATIVE: CASE EVENT DATE: 20240423
